FAERS Safety Report 9008003 (Version 1)
Quarter: 2013Q1

REPORT INFORMATION
  Report Type: Report from Study
  Country: CA (occurrence: CA)
  Receive Date: 20130110
  Receipt Date: 20130110
  Transmission Date: 20140127
  Serious: Yes (Death, Hospitalization)
  Sender: FDA-Public Use
  Company Number: CA-ABBOTT-13P-028-1034628-00

PATIENT
  Sex: Male
  Weight: 72.64 kg

DRUGS (1)
  1. LEUPROLIDE ACETATE DEPOT [Suspect]
     Indication: PROSTATE CANCER
     Route: 030
     Dates: start: 20031203, end: 20120911

REACTIONS (2)
  - Death [Fatal]
  - Pain [Unknown]
